FAERS Safety Report 8903693 (Version 1)
Quarter: 2012Q4

REPORT INFORMATION
  Report Type: 
  Country: US (occurrence: US)
  Receive Date: 20121113
  Receipt Date: 20121113
  Transmission Date: 20130627
  Serious: No
  Sender: FDA-Public Use
  Company Number: US-AMGEN-USASP2012010104

PATIENT
  Age: 54 Year
  Sex: Female
  Weight: 95.24 kg

DRUGS (18)
  1. ENBREL [Suspect]
     Indication: PRODUCT USED FOR UNKNOWN INDICATION
     Dosage: 50 mg, qwk
     Route: 058
  2. ZOCOR [Concomitant]
     Dosage: 5 mg, UNK
  3. RELPAX [Concomitant]
     Dosage: 20 mg, UNK
  4. ZALEPLON [Concomitant]
     Dosage: 5 mg, UNK
  5. PREDNISONE [Concomitant]
     Dosage: 5 mg, UNK
  6. ZYRTEC [Concomitant]
     Dosage: 5 mg, UNK
  7. REGLAN                             /00041901/ [Concomitant]
     Dosage: 5 mg, UNK
  8. NYSTATIN W/TRIAMCINOLONE           /00945901/ [Concomitant]
     Dosage: UNK
  9. DESONIDE [Concomitant]
     Dosage: 0.05 %, UNK
  10. ZOFRAN                             /00955301/ [Concomitant]
     Dosage: 4 mg, UNK
  11. VERAPAMIL [Concomitant]
     Dosage: 120 mg, UNK
  12. MAGNESIUM [Concomitant]
     Dosage: 30 mg, UNK
  13. NEXIUM                             /01479302/ [Concomitant]
     Dosage: 20 mg, UNK
  14. MECLIZINE                          /00072801/ [Concomitant]
     Dosage: 12.5 mg, UNK
  15. AMITRIPTYLIN [Concomitant]
     Dosage: 25 mg, UNK
  16. LEXAPRO [Concomitant]
     Dosage: 5 mg, UNK
  17. MULTIVITAMIN                       /00097801/ [Concomitant]
     Dosage: UNK
  18. CORAL CALCIUM [Concomitant]
     Dosage: UNK

REACTIONS (1)
  - Psoriasis [Unknown]
